FAERS Safety Report 9325455 (Version 1)
Quarter: 2013Q2

REPORT INFORMATION
  Report Type: Spontaneous
  Country: US (occurrence: None)
  Receive Date: 20130528
  Receipt Date: 20130528
  Transmission Date: 20140414
  Serious: Yes (Other)
  Sender: FDA-Public Use
  Company Number: AUR-APL-2013-04263

PATIENT
  Age: 12 Year
  Sex: Female
  Weight: 62.58 kg

DRUGS (2)
  1. METFORMIN (METFORMIN) [Suspect]
     Indication: DIABETES MELLITUS
     Dosage: 1D
  2. GEODON [Suspect]
     Indication: AFFECTIVE DISORDER
     Dosage: 1 D
     Dates: start: 2011, end: 201303

REACTIONS (9)
  - Drug withdrawal syndrome [None]
  - Mood swings [None]
  - Anger [None]
  - Depression [None]
  - Weight increased [None]
  - Thyroid function test abnormal [None]
  - Diabetes mellitus [None]
  - Emotional disorder [None]
  - Aggression [None]
